FAERS Safety Report 17306340 (Version 1)
Quarter: 2020Q1

REPORT INFORMATION
  Report Type: Spontaneous
  Country: BR (occurrence: BR)
  Receive Date: 20200123
  Receipt Date: 20200123
  Transmission Date: 20200409
  Serious: Yes (Disabling, Other)
  Sender: FDA-Public Use
  Company Number: BR-TEVA-2020-BR-1172459

PATIENT
  Age: 79 Year
  Sex: Female
  Weight: 65 kg

DRUGS (6)
  1. SUPRENIQ 250MG/5ML [Suspect]
     Active Substance: FULVESTRANT
     Indication: METASTASES TO BONE
     Dosage: 500 MG (250 MG IN EACH GLUTE)
     Route: 030
     Dates: start: 20191022
  2. PITAVASTATIN. [Concomitant]
     Active Substance: PITAVASTATIN CALCIUM
  3. DULOXETINE. [Concomitant]
     Active Substance: DULOXETINE
  4. SUPRENIQ 250MG/5ML [Suspect]
     Active Substance: FULVESTRANT
     Indication: METASTASES TO LUNG
     Dosage: 3 DOSES OF SUPRENIQ
     Route: 065
     Dates: start: 201812
  5. CIPROFIBRATE [Concomitant]
     Active Substance: CIPROFIBRATE
  6. SUPRENIQ 250MG/5ML [Suspect]
     Active Substance: FULVESTRANT
     Indication: BREAST CANCER
     Dosage: 500 MG (250 MG IN EACH GLUTE)
     Route: 030
     Dates: start: 20190924

REACTIONS (15)
  - Renal pain [Not Recovered/Not Resolved]
  - Arthralgia [Not Recovered/Not Resolved]
  - Gait inability [Recovered/Resolved]
  - Peripheral swelling [Not Recovered/Not Resolved]
  - Product substitution issue [Unknown]
  - Rash [Not Recovered/Not Resolved]
  - Pyrexia [Not Recovered/Not Resolved]
  - Burning sensation [Not Recovered/Not Resolved]
  - Wheezing [Not Recovered/Not Resolved]
  - Paraesthesia [Not Recovered/Not Resolved]
  - Fatigue [Not Recovered/Not Resolved]
  - Neuropathy peripheral [Recovering/Resolving]
  - Pain in extremity [Not Recovered/Not Resolved]
  - Vulvovaginal burning sensation [Not Recovered/Not Resolved]
  - Pain in extremity [Not Recovered/Not Resolved]

NARRATIVE: CASE EVENT DATE: 20191022
